FAERS Safety Report 9768199 (Version 1)
Quarter: 2013Q4

REPORT INFORMATION
  Report Type: Spontaneous
  Country: IT (occurrence: IT)
  Receive Date: 20131217
  Receipt Date: 20131217
  Transmission Date: 20140711
  Serious: Yes (Hospitalization)
  Sender: FDA-Public Use
  Company Number: IT-GLAXOSMITHKLINE-B0953493A

PATIENT
  Age: 2 Month
  Sex: Female

DRUGS (1)
  1. RANIDIL [Suspect]
     Indication: PRODUCT USED FOR UNKNOWN INDICATION
     Dosage: 15ML PER DAY
     Route: 065
     Dates: start: 20120614

REACTIONS (2)
  - Overdose [Recovered/Resolved]
  - No adverse event [Unknown]
